FAERS Safety Report 16465549 (Version 1)
Quarter: 2019Q2

REPORT INFORMATION
  Report Type: Spontaneous
  Country: US (occurrence: US)
  Receive Date: 20190621
  Receipt Date: 20190621
  Transmission Date: 20190711
  Serious: No
  Sender: FDA-Public Use
  Company Number: US-EGALET US INC-US-2018EGA000833

PATIENT

DRUGS (1)
  1. SPRIX [Suspect]
     Active Substance: KETOROLAC TROMETHAMINE
     Indication: MUSCLE SPASMS
     Dosage: ONE SPRAY IN ONE NOSTRIL EVERY 6 TO 8 HOURS
     Route: 045

REACTIONS (6)
  - Drug ineffective [Unknown]
  - Muscle spasms [Recovering/Resolving]
  - Family stress [Unknown]
  - Myalgia [Recovering/Resolving]
  - Wrong technique in product usage process [Unknown]
  - Chest pain [Unknown]

NARRATIVE: CASE EVENT DATE: 2018
